FAERS Safety Report 4399210-1 (Version None)
Quarter: 2004Q3

REPORT INFORMATION
  Report Type: 
  Country: None (occurrence: None)
  Receive Date: 20040716
  Receipt Date: 20040506
  Transmission Date: 20050211
  Serious: Yes (Hospitalization)
  Sender: FDA-Public Use
  Company Number: US-BRISTOL-MYERS SQUIBB COMPANY-12580973

PATIENT
  Age: 67 Year
  Sex: Female
  Weight: 70 kg

DRUGS (6)
  1. CARBOPLATIN [Suspect]
     Indication: CARCINOMA
     Dosage: AUC 6
     Route: 042
  2. TAXOL [Suspect]
     Indication: CARCINOMA
     Route: 042
  3. DECADRON [Concomitant]
     Indication: PREMEDICATION
  4. TYLENOL [Concomitant]
     Indication: PREMEDICATION
  5. ZOFRAN [Concomitant]
     Indication: PREMEDICATION
  6. VASOTEC [Concomitant]

REACTIONS (2)
  - MYALGIA [None]
  - RASH [None]
